FAERS Safety Report 8381735-5 (Version None)
Quarter: 2012Q2

REPORT INFORMATION
  Report Type: 
  Country: None (occurrence: None)
  Receive Date: 20120524
  Receipt Date: 20090710
  Transmission Date: 20120825
  Serious: No
  Sender: FDA-Public Use
  Company Number: US-BIOGENIDEC-2009BI021280

PATIENT
  Age: 58 Year
  Sex: Male

DRUGS (1)
  1. AVONEX [Suspect]
     Indication: MULTIPLE SCLEROSIS
     Route: 030
     Dates: start: 20040201

REACTIONS (6)
  - FIBROSIS [None]
  - NASOPHARYNGITIS [None]
  - CONJUNCTIVITIS INFECTIVE [None]
  - INFLUENZA LIKE ILLNESS [None]
  - TYPE 2 DIABETES MELLITUS [None]
  - PAIN IN EXTREMITY [None]
